FAERS Safety Report 4341353-2 (Version None)
Quarter: 2004Q2

REPORT INFORMATION
  Report Type: 
  Country: None (occurrence: None)
  Receive Date: 20040412
  Receipt Date: 20040217
  Transmission Date: 20050107
  Serious: Yes (Hospitalization)
  Sender: FDA-Public Use
  Company Number: ENTC2004-0025(0)

PATIENT
  Age: 82 Year
  Sex: Male

DRUGS (1)
  1. STALEVO 50 [Suspect]
     Indication: PARKINSON'S DISEASE
     Dosage: 150 MG/ 37.5 MG/200 MG 3 TIMES A DAY, ORAL
     Route: 048

REACTIONS (1)
  - ARRHYTHMIA [None]
